FAERS Safety Report 20542627 (Version 3)
Quarter: 2022Q2

REPORT INFORMATION
  Report Type: Report from Study
  Country: NL (occurrence: NL)
  Receive Date: 20220302
  Receipt Date: 20220606
  Transmission Date: 20220721
  Serious: Yes (Death, Hospitalization, Other)
  Sender: FDA-Public Use
  Company Number: NL-BRISTOL-MYERS SQUIBB COMPANY-BMS-2022-030040

PATIENT
  Sex: Male

DRUGS (3)
  1. NIVOLUMAB [Suspect]
     Active Substance: NIVOLUMAB
     Indication: Pleural mesothelioma malignant
     Dosage: 360 MILLIGRAM, Q3WK
     Route: 042
     Dates: start: 20220209, end: 20220209
  2. IPILIMUMAB [Suspect]
     Active Substance: IPILIMUMAB
     Indication: Pleural mesothelioma malignant
     Dosage: 83 MILLIGRAM, Q6WK
     Route: 042
     Dates: start: 20220209, end: 20220209
  3. ACETAMINOPHEN [Concomitant]
     Active Substance: ACETAMINOPHEN
     Indication: Analgesic therapy
     Dosage: 4X1000
     Route: 048
     Dates: start: 20220101

REACTIONS (3)
  - Immune-mediated myositis [Fatal]
  - Respiratory failure [Unknown]
  - Arrhythmia [Unknown]

NARRATIVE: CASE EVENT DATE: 20220222
